FAERS Safety Report 7373918-8 (Version None)
Quarter: 2011Q1

REPORT INFORMATION
  Report Type: 
  Country: None (occurrence: None)
  Receive Date: 20110325
  Receipt Date: 20110323
  Transmission Date: 20110831
  Serious: Yes (Other)
  Sender: FDA-Public Use
  Company Number: US-PFIZER INC-2011040146

PATIENT
  Sex: Female
  Weight: 60 kg

DRUGS (4)
  1. COGENTIN [Concomitant]
     Dosage: 1 MG, 1X/DAY
  2. SELEGILINE [Concomitant]
     Dosage: UNK
     Route: 062
  3. GEODON [Suspect]
     Indication: BIPOLAR DISORDER
     Dosage: 20 MG, 3X/DAY
     Route: 048
  4. PRESOLOL [Concomitant]
     Dosage: 20 MG, 1X/DAY

REACTIONS (1)
  - TARDIVE DYSKINESIA [None]
